FAERS Safety Report 9880334 (Version 2)
Quarter: 2014Q2

REPORT INFORMATION
  Report Type: Report from Study
  Country: NZ (occurrence: NZ)
  Receive Date: 20140207
  Receipt Date: 20140512
  Transmission Date: 20141212
  Serious: Yes (Life-Threatening, Hospitalization)
  Sender: FDA-Public Use
  Company Number: PHHY2014NZ012060

PATIENT
  Age: 54 Year
  Sex: Female

DRUGS (3)
  1. 5-FLUOROURACIL [Suspect]
     Indication: COLORECTAL CANCER METASTATIC
     Dosage: 4870 MG, BIW
     Route: 042
     Dates: start: 20130620
  2. LEUCOVORIN CALCIUM [Suspect]
     Indication: COLORECTAL CANCER METASTATIC
     Dosage: 810 MG, BIW
     Route: 042
     Dates: start: 20130620
  3. IRINOTECAN [Suspect]
     Indication: COLORECTAL CANCER METASTATIC
     Dosage: 365 MG, BIW
     Route: 042
     Dates: start: 20130620

REACTIONS (2)
  - Arteriospasm coronary [Recovered/Resolved]
  - Angina pectoris [Recovered/Resolved]
